FAERS Safety Report 8829702 (Version 1)
Quarter: 2012Q4

REPORT INFORMATION
  Report Type: 
  Country: US (occurrence: US)
  Receive Date: 20121008
  Receipt Date: 20121008
  Transmission Date: 20130627
  Serious: No
  Sender: FDA-Public Use
  Company Number: US-TEVA-309489USA

PATIENT
  Sex: Male

DRUGS (5)
  1. QVAR [Suspect]
     Route: 055
  2. MOMETASONE FUROATE [Suspect]
     Dosage: 440 Milligram Daily; 2 puff
     Dates: start: 2009, end: 20111103
  3. RESCUE INHALERS [Suspect]
  4. NASAL SPRAY 12 HOUR [Concomitant]
  5. NASAL MIST [Concomitant]

REACTIONS (1)
  - Oropharyngeal discomfort [Not Recovered/Not Resolved]
